FAERS Safety Report 14411892 (Version 1)
Quarter: 2018Q1

REPORT INFORMATION
  Report Type: Spontaneous
  Country: JP (occurrence: JP)
  Receive Date: 20180119
  Receipt Date: 20180119
  Transmission Date: 20180509
  Serious: Yes (Hospitalization)
  Sender: FDA-Public Use
  Company Number: JP-PFIZER INC-2018023018

PATIENT

DRUGS (1)
  1. METHOTREXATE 50MG [Suspect]
     Active Substance: METHOTREXATE
     Indication: TERATOMA
     Dosage: UNK FOR 5 CONSECUTIVE DAYS
     Route: 058

REACTIONS (1)
  - Eczema [Recovering/Resolving]
